FAERS Safety Report 5779775-5 (Version None)
Quarter: 2008Q2

REPORT INFORMATION
  Report Type: 
  Country: None (occurrence: None)
  Receive Date: 20080618
  Receipt Date: 20080611
  Transmission Date: 20081010
  Serious: Yes (Other)
  Sender: FDA-Public Use
  Company Number: 2008SP011527

PATIENT
  Age: 64 Year
  Sex: Male

DRUGS (2)
  1. PEG-INTRON [Suspect]
     Indication: HEPATITIS C
     Dosage: SC
     Route: 058
     Dates: start: 20061001, end: 20070101
  2. REBETOL [Suspect]
     Indication: HEPATITIS C
     Dosage: PO
     Route: 048
     Dates: start: 20061001, end: 20070101

REACTIONS (4)
  - BILIARY TRACT INFECTION BACTERIAL [None]
  - BILOMA [None]
  - ENTEROBACTER INFECTION [None]
  - NO THERAPEUTIC RESPONSE [None]
